FAERS Safety Report 7665577-1 (Version None)
Quarter: 2011Q3

REPORT INFORMATION
  Report Type: 
  Country: None (occurrence: None)
  Receive Date: 20110806
  Receipt Date: 20110504
  Transmission Date: 20111222
  Serious: No
  Sender: FDA-Public Use
  Company Number: US-ABBOTT-11P-163-0723436-00

PATIENT
  Sex: Male
  Weight: 80.812 kg

DRUGS (2)
  1. NIASPAN [Suspect]
     Indication: HIGH DENSITY LIPOPROTEIN DECREASED
     Dosage: AT BEDTIME
     Dates: start: 20110502
  2. ASPIRIN [Concomitant]
     Indication: PRODUCT USED FOR UNKNOWN INDICATION

REACTIONS (6)
  - ADVERSE REACTION [None]
  - NAUSEA [None]
  - DIZZINESS [None]
  - PRURITUS GENERALISED [None]
  - SKIN BURNING SENSATION [None]
  - INCORRECT DOSE ADMINISTERED [None]
